FAERS Safety Report 4424485-X (Version None)
Quarter: 2004Q3

REPORT INFORMATION
  Report Type: 
  Country: None (occurrence: None)
  Receive Date: 20040812
  Receipt Date: 20040802
  Transmission Date: 20050211
  Serious: Yes (Other)
  Sender: FDA-Public Use
  Company Number: GB-GLAXOSMITHKLINE-B0341269A

PATIENT
  Age: 75 Year
  Sex: Male
  Weight: 77 kg

DRUGS (2)
  1. ZYBAN [Suspect]
     Indication: EX-SMOKER
     Dosage: 150MG TWICE PER DAY
     Route: 048
     Dates: start: 20040420, end: 20040528
  2. RABEPRAZOLE SODIUM [Concomitant]
     Indication: DYSPEPSIA
     Dosage: 10MG PER DAY
     Route: 048
     Dates: start: 20000628

REACTIONS (6)
  - ANOREXIA [None]
  - DECREASED INTEREST [None]
  - DEPRESSION [None]
  - DIZZINESS [None]
  - FATIGUE [None]
  - TREMOR [None]
